FAERS Safety Report 14472245 (Version 1)
Quarter: 2018Q1

REPORT INFORMATION
  Report Type: Report from Study
  Country: US (occurrence: US)
  Receive Date: 20180131
  Receipt Date: 20180131
  Transmission Date: 20180509
  Serious: Yes (Hospitalization, Other)
  Sender: FDA-Public Use
  Company Number: US-GILEAD-2018-0318064

PATIENT
  Age: 62 Year
  Sex: Female

DRUGS (15)
  1. FLONASE                            /00908302/ [Concomitant]
     Active Substance: MOMETASONE FUROATE
  2. RANITIDINE. [Concomitant]
     Active Substance: RANITIDINE
  3. LISINOPRIL. [Concomitant]
     Active Substance: LISINOPRIL
  4. LEVAQUIN [Concomitant]
     Active Substance: LEVOFLOXACIN
  5. IBUPROFEN. [Concomitant]
     Active Substance: IBUPROFEN
  6. LEDIPASVIR/SOFOSBUVIR [Suspect]
     Active Substance: LEDIPASVIR\SOFOSBUVIR
     Indication: CHRONIC HEPATITIS C
     Dosage: 1 DF, UNK
     Route: 065
     Dates: start: 20170826
  7. SPIRIVA [Concomitant]
     Active Substance: TIOTROPIUM BROMIDE MONOHYDRATE
  8. PHAZYME                            /00164001/ [Concomitant]
  9. ZOFRAN [Concomitant]
     Active Substance: ONDANSETRON HYDROCHLORIDE
  10. SYMBICORT [Concomitant]
     Active Substance: BUDESONIDE\FORMOTEROL FUMARATE DIHYDRATE
  11. HYDROCHLOROTHIAZIDE. [Concomitant]
     Active Substance: HYDROCHLOROTHIAZIDE
  12. ASPIRIN                            /00002701/ [Concomitant]
     Active Substance: ASPIRIN
  13. PREDNISONE. [Concomitant]
     Active Substance: PREDNISONE
  14. MELATON                            /01243201/ [Concomitant]
  15. RIBAVIRIN. [Concomitant]
     Active Substance: RIBAVIRIN

REACTIONS (2)
  - Drug dose omission [Unknown]
  - Pneumonia [Unknown]
